FAERS Safety Report 4615875-0 (Version None)
Quarter: 2005Q1

REPORT INFORMATION
  Report Type: 
  Country: None (occurrence: None)
  Receive Date: 20050321
  Receipt Date: 20050310
  Transmission Date: 20050727
  Serious: Yes (Life-Threatening, Hospitalization, Disabling)
  Sender: FDA-Public Use
  Company Number: GXKR2005DE00735

PATIENT
  Age: 61 Year
  Sex: Female
  Weight: 64 kg

DRUGS (2)
  1. METFORMIN (NGX) (METFORMIN) [Suspect]
     Indication: DIABETES MELLITUS
     Dosage: 850 MG, TID
  2. GLIMEPIRIDE [Concomitant]

REACTIONS (11)
  - ABDOMINAL PAIN [None]
  - BRADYARRHYTHMIA [None]
  - CARDIAC ARREST [None]
  - DYSARTHRIA [None]
  - HYPOTHERMIA [None]
  - HYPOXIA [None]
  - LACTIC ACIDOSIS [None]
  - RENAL FAILURE [None]
  - SPEECH DISORDER [None]
  - SYSTEMIC INFLAMMATORY RESPONSE SYNDROME [None]
  - VISION BLURRED [None]
